FAERS Safety Report 14946901 (Version 1)
Quarter: 2018Q2

REPORT INFORMATION
  Report Type: Spontaneous
  Country: JP (occurrence: JP)
  Receive Date: 20180529
  Receipt Date: 20180529
  Transmission Date: 20180711
  Serious: Yes (Death)
  Sender: FDA-Public Use
  Company Number: JP-PFIZER INC-2018214131

PATIENT
  Age: 77 Year
  Sex: Female

DRUGS (6)
  1. MEROPENEM. [Suspect]
     Active Substance: MEROPENEM
     Indication: URINARY TRACT INFECTION BACTERIAL
     Dosage: 0.5 G, DAILY, (UNTIL DAY 23)
  2. PAZUFLOXACIN [Suspect]
     Active Substance: PAZUFLOXACIN
     Indication: URINARY TRACT INFECTION BACTERIAL
     Dosage: 300 MG, DAILY, (UNTIL DAY 23)
     Route: 042
  3. MOXIFLOXACIN. [Suspect]
     Active Substance: MOXIFLOXACIN
     Indication: URINARY TRACT INFECTION BACTERIAL
     Dosage: 400 MG, DAILY, (DAY 7 TO DAY 9) UNTIL DAY 23
     Route: 048
  4. MOXIFLOXACIN. [Suspect]
     Active Substance: MOXIFLOXACIN
     Indication: SALMONELLA BACTERAEMIA
  5. PAZUFLOXACIN [Suspect]
     Active Substance: PAZUFLOXACIN
     Indication: SALMONELLA BACTERAEMIA
  6. MEROPENEM. [Suspect]
     Active Substance: MEROPENEM
     Indication: URINARY TRACT INFECTION BACTERIAL

REACTIONS (1)
  - Drug ineffective [Fatal]
